FAERS Safety Report 13970991 (Version 2)
Quarter: 2018Q3

REPORT INFORMATION
  Report Type: Spontaneous
  Country: US (occurrence: US)
  Receive Date: 20170914
  Receipt Date: 20180913
  Transmission Date: 20181010
  Serious: No
  Sender: FDA-Public Use
  Company Number: US-ASTELLAS-2017US001286

PATIENT
  Age: 85 Year
  Sex: Male

DRUGS (2)
  1. XTANDI [Suspect]
     Active Substance: ENZALUTAMIDE
     Indication: PROSTATE CANCER
     Route: 048
     Dates: start: 20161130
  2. XTANDI [Suspect]
     Active Substance: ENZALUTAMIDE
     Route: 048
     Dates: start: 20170919

REACTIONS (11)
  - Salivary hypersecretion [Unknown]
  - Dysgeusia [Recovering/Resolving]
  - Diarrhoea [Unknown]
  - Fatigue [Recovering/Resolving]
  - Ageusia [Unknown]
  - Asthenia [Recovering/Resolving]
  - Dysgeusia [Unknown]
  - Blood urine present [Unknown]
  - Pollakiuria [Unknown]
  - Tearfulness [Unknown]
  - Weight decreased [Recovering/Resolving]
